FAERS Safety Report 9086408 (Version 1)
Quarter: 2013Q1

REPORT INFORMATION
  Report Type: Report from Study
  Country: US (occurrence: US)
  Receive Date: 20130131
  Receipt Date: 20130131
  Transmission Date: 20140127
  Serious: No
  Sender: FDA-Public Use
  Company Number: US-ABBOTT-12P-163-0993031-00

PATIENT
  Age: 37 Year
  Sex: Female

DRUGS (3)
  1. HUMIRA [Suspect]
     Indication: COLITIS ULCERATIVE
     Dates: start: 20120723, end: 20120820
  2. LIALDA [Concomitant]
     Indication: COLITIS ULCERATIVE
     Dosage: 4 TABLETS DAILY
  3. PROPANOLOL [Concomitant]
     Indication: HYPERTENSION
     Dosage: 2-3 TIMES DAILY

REACTIONS (5)
  - Extrapyramidal disorder [Recovered/Resolved]
  - Dizziness [Recovered/Resolved with Sequelae]
  - Confusional state [Recovered/Resolved]
  - Amnesia [Recovered/Resolved]
  - Nightmare [Unknown]
